FAERS Safety Report 12581261 (Version 1)
Quarter: 2016Q3

REPORT INFORMATION
  Report Type: Spontaneous
  Country: DE (occurrence: DE)
  Receive Date: 20160721
  Receipt Date: 20160721
  Transmission Date: 20161109
  Serious: Yes (Hospitalization, Other)
  Sender: FDA-Public Use
  Company Number: DE-009507513-1607DEU008050

PATIENT
  Age: 65 Year
  Sex: Male

DRUGS (1)
  1. KEYTRUDA [Suspect]
     Active Substance: PEMBROLIZUMAB
     Indication: METASTATIC MALIGNANT MELANOMA
     Dosage: INFUSION, 2 MG/KG BODY WEIGHT (=186.0 MG)
     Route: 042
     Dates: start: 20160217, end: 20160308

REACTIONS (2)
  - Autoimmune hepatitis [Recovered/Resolved]
  - Secondary hypothyroidism [Recovered/Resolved]

NARRATIVE: CASE EVENT DATE: 20160323
